FAERS Safety Report 6585365-7 (Version None)
Quarter: 2010Q1

REPORT INFORMATION
  Report Type: 
  Country: None (occurrence: None)
  Receive Date: 20100201
  Receipt Date: 20090325
  Transmission Date: 20100710
  Serious: Yes (Other)
  Sender: FDA-Public Use
  Company Number: 8044340

PATIENT

DRUGS (1)
  1. KEPPRA [Suspect]
     Dosage: 1500 MG BID ORAL
     Route: 048

REACTIONS (1)
  - CONVULSION [None]
